FAERS Safety Report 5734674-X (Version None)
Quarter: 2008Q2

REPORT INFORMATION
  Report Type: 
  Country: None (occurrence: None)
  Receive Date: 20080512
  Receipt Date: 20080506
  Transmission Date: 20081010
  Serious: Yes (Death, Other)
  Sender: FDA-Public Use
  Company Number: PHHY2008AT06727

PATIENT
  Age: 67 Year
  Sex: Male
  Weight: 79 kg

DRUGS (4)
  1. VALTREX [Concomitant]
     Indication: HERPES VIRUS INFECTION
     Dosage: 2000 MG
     Route: 048
     Dates: start: 20080129, end: 20080425
  2. GLUCOPHAGE [Concomitant]
     Indication: DIABETES MELLITUS
     Dosage: 1700 MG DAILY
     Route: 048
     Dates: end: 20080425
  3. ACTOS [Concomitant]
     Indication: DIABETES MELLITUS
     Dosage: 20 MG DAILY
     Route: 048
     Dates: end: 20080425
  4. EXJADE [Suspect]
     Indication: HAEMOSIDEROSIS
     Dosage: 1500 MG/DAY
     Route: 048
     Dates: start: 20080328, end: 20080425

REACTIONS (7)
  - CEREBRAL HAEMORRHAGE [None]
  - EPSTEIN-BARR VIRUS INFECTION [None]
  - LYMPH NODE ABSCESS [None]
  - LYMPHADENECTOMY [None]
  - LYMPHADENITIS [None]
  - LYMPHADENOPATHY [None]
  - LYMPHOMA [None]
